FAERS Safety Report 6271479-8 (Version None)
Quarter: 2009Q3

REPORT INFORMATION
  Report Type: 
  Country: None (occurrence: None)
  Receive Date: 20090717
  Receipt Date: 20090707
  Transmission Date: 20100115
  Serious: Yes (Hospitalization)
  Sender: FDA-Public Use
  Company Number: TW-PFIZER INC-2009199628

PATIENT
  Age: 72 Year

DRUGS (14)
  1. SUNITINIB MALATE [Suspect]
     Indication: HEPATIC NEOPLASM MALIGNANT
     Dosage: 12.5 MG, 1X/DAY
     Route: 048
     Dates: start: 20090119, end: 20090412
  2. DILTIAZEM [Concomitant]
     Indication: HYPERTENSION
     Dosage: 180 MG, 1X/DAY
  3. LOSARTAN [Concomitant]
     Indication: HYPERTENSION
     Dosage: 50 MG, 1X/DAY
  4. XANTHIUM [Concomitant]
     Indication: HYPERTENSION
     Dosage: 200 MG, 2X/DAY
  5. BROWN MIXTURE [Concomitant]
     Indication: COUGH
     Dosage: 10 ML, 4X/DAY
     Dates: start: 20090204
  6. MUCOSOLVAN [Concomitant]
     Indication: COUGH
     Dosage: 30 MG, 3X/DAY
     Dates: start: 20090204
  7. BENAZON [Concomitant]
     Indication: ANAL ULCER
     Dosage: UNK
     Dates: start: 20090212
  8. ACETAMINOPHEN [Concomitant]
     Indication: PROPHYLAXIS
     Dosage: 500 MG, AS NEEDED
  9. DEXAMETHASONE [Concomitant]
     Indication: TONGUE ULCERATION
     Dosage: 5 G, 2X/DAY
     Dates: start: 20090204
  10. CHLORHEXIDINE GLUCONATE [Concomitant]
     Indication: TONGUE ULCERATION
     Dosage: 200 MG, 2X/DAY
     Dates: start: 20090204
  11. SODIUM PHOSPHATE DIBASIC [Concomitant]
     Indication: CONSTIPATION
     Dosage: 118 MG, UNK
     Dates: start: 20090310, end: 20090310
  12. MAGNESIUM OXIDE [Concomitant]
     Indication: CONSTIPATION
     Dosage: 250 MG, 3X/DAY
     Dates: start: 20090310
  13. CHLORAMPHENICOL [Concomitant]
     Dosage: 10 ML, 3X/DAY
     Dates: start: 20090312
  14. SOLUTIONS FOR PARENTERAL NUTRITION [Concomitant]
     Indication: DIARRHOEA
     Dosage: 500 ML, 1X/DAY
     Dates: start: 20090310, end: 20090311

REACTIONS (1)
  - SCROTAL ERYTHEMA [None]
